FAERS Safety Report 5357973-2 (Version None)
Quarter: 2007Q2

REPORT INFORMATION
  Report Type: 
  Country: None (occurrence: None)
  Receive Date: 20070612
  Receipt Date: 20070604
  Transmission Date: 20071010
  Serious: Yes (Hospitalization)
  Sender: FDA-Public Use
  Company Number: 163-20785-07041020

PATIENT
  Age: 46 Year
  Sex: Female

DRUGS (8)
  1. THALOMID [Suspect]
     Indication: SYSTEMIC LUPUS ERYTHEMATOSUS
     Dosage: 50 MG, 1 IN 1 D, ORAL
     Route: 048
     Dates: start: 20011101
  2. CELLCEPT [Concomitant]
  3. PREDNISONE (PREDNISONE0 [Concomitant]
  4. PROGRAF [Concomitant]
  5. CARBAMAZEPINE [Concomitant]
  6. ATENOLOL [Concomitant]
  7. PLAQUENIL [Concomitant]
  8. FOLIC ACID [Concomitant]

REACTIONS (2)
  - LOCALISED INFECTION [None]
  - OSTEOMYELITIS [None]
